FAERS Safety Report 24137721 (Version 1)
Quarter: 2024Q3

REPORT INFORMATION
  Report Type: Spontaneous
  Country: KR (occurrence: KR)
  Receive Date: 20240725
  Receipt Date: 20240725
  Transmission Date: 20241017
  Serious: Yes (Other)
  Sender: NOVARTIS
  Company Number: KR-002147023-NVSC2024KR150569

PATIENT
  Age: 1 Year
  Sex: Female

DRUGS (2)
  1. CYCLOSPORINE [Suspect]
     Active Substance: CYCLOSPORINE
     Indication: Malignant neoplasm of retina
     Dosage: 112.8 MG, QD
     Route: 065
     Dates: start: 20210327, end: 20210328
  2. ETOPOSIDE [Concomitant]
     Active Substance: ETOPOSIDE
     Indication: Malignant neoplasm of retina
     Dosage: 55.2 MG, QD
     Route: 065
     Dates: start: 20210327, end: 20210328

REACTIONS (3)
  - Urticaria [Recovered/Resolved]
  - Dyspnoea [Recovered/Resolved]
  - Rash [Recovered/Resolved]

NARRATIVE: CASE EVENT DATE: 20210327
